FAERS Safety Report 8106952 (Version 4)
Quarter: 2013Q4

REPORT INFORMATION
  Report Type: Spontaneous
  Country: US (occurrence: US)
  Receive Date: 20110825
  Receipt Date: 20131126
  Transmission Date: 20140711
  Serious: Yes (Other)
  Sender: FDA-Public Use
  Company Number: US-BAYER-2011-074972

PATIENT
  Age: 18 Year
  Sex: Female
  Weight: 95.24 kg

DRUGS (4)
  1. YASMIN [Suspect]
     Indication: PREMENSTRUAL SYNDROME
     Dosage: UNK
     Dates: start: 200604, end: 200904
  2. AZITHROMYCIN [Concomitant]
     Dosage: 500 MG, UNK
  3. FLUCONAZOLE [Concomitant]
     Dosage: 150 MG, UNK
  4. OMEPRAZOLE [Concomitant]
     Dosage: 40 MG, UNK

REACTIONS (4)
  - Gallbladder injury [None]
  - Biliary dyskinesia [None]
  - Pain [None]
  - Injury [None]
